FAERS Safety Report 19593129 (Version 1)
Quarter: 2021Q3

REPORT INFORMATION
  Report Type: Spontaneous
  Country: IT (occurrence: IT)
  Receive Date: 20210722
  Receipt Date: 20210722
  Transmission Date: 20211014
  Serious: Yes (Death, Life-Threatening, Other)
  Sender: FDA-Public Use
  Company Number: IT-AMGEN-ITASP2021108554

PATIENT
  Age: 59 Year
  Sex: Female

DRUGS (4)
  1. PANITUMUMAB [Suspect]
     Active Substance: PANITUMUMAB
     Indication: COLORECTAL CANCER
     Route: 065
  2. FILGRASTIM [Suspect]
     Active Substance: FILGRASTIM
     Indication: NEUTROPENIA
     Route: 065
  3. REGORAFENIB. [Concomitant]
     Active Substance: REGORAFENIB
     Indication: COLORECTAL CANCER
     Dosage: 120 MILLIGRAM, QD
  4. TIPIRACIL;TRIFLURIDINE [Concomitant]
     Active Substance: TIPIRACIL HYDROCHLORIDE\TRIFLURIDINE
     Indication: COLORECTAL CANCER
     Dosage: 35 MILLIGRAM/SQ. METER, BID

REACTIONS (29)
  - Metastases to liver [Unknown]
  - Hydroureter [Unknown]
  - Hypokalaemia [Unknown]
  - Rhinitis [Unknown]
  - Hypotension [Unknown]
  - Rash erythematous [Unknown]
  - Diarrhoea [Unknown]
  - Paronychia [Unknown]
  - Pyrexia [Unknown]
  - Metastases to lung [Unknown]
  - Neuropathy peripheral [Unknown]
  - Palmar-plantar erythrodysaesthesia syndrome [Unknown]
  - Anaemia [Unknown]
  - Nausea [Unknown]
  - Mucosal inflammation [Unknown]
  - Metastases to lymph nodes [Unknown]
  - Ureteric dilatation [Unknown]
  - Dry skin [Unknown]
  - Condition aggravated [Fatal]
  - Neutropenia [Unknown]
  - Therapy partial responder [Unknown]
  - Dysgeusia [Unknown]
  - Decreased appetite [Unknown]
  - Constipation [Unknown]
  - Leukopenia [Unknown]
  - Metastases to bone [Unknown]
  - Squamous cell carcinoma of skin [Unknown]
  - Metastases to pelvis [Unknown]
  - Thrombocytopenia [Unknown]
